FAERS Safety Report 21792901 (Version 2)
Quarter: 2023Q1

REPORT INFORMATION
  Report Type: Report from Study
  Country: UG (occurrence: UG)
  Receive Date: 20221229
  Receipt Date: 20230109
  Transmission Date: 20230417
  Serious: Yes (Other)
  Sender: FDA-Public Use
  Company Number: UG-GILEAD-2022-0610484

PATIENT
  Sex: Female
  Weight: 57 kg

DRUGS (5)
  1. LENACAPAVIR [Suspect]
     Active Substance: LENACAPAVIR
     Indication: Prophylaxis against HIV infection
     Dosage: 463.5 MG
     Route: 058
     Dates: start: 20221219
  2. LENACAPAVIR [Suspect]
     Active Substance: LENACAPAVIR
     Dosage: 2 DOSAGE FORM
     Route: 048
     Dates: start: 20221219
  3. PLACEBO [Suspect]
     Active Substance: UNSPECIFIED INGREDIENT
     Indication: Prophylaxis against HIV infection
     Dosage: 1 DOSAGE FORM, QD
     Route: 048
     Dates: start: 20221219
  4. PLACEBO [Suspect]
     Active Substance: UNSPECIFIED INGREDIENT
     Dosage: 2 DOSAGE FORM
     Route: 048
     Dates: start: 20221220
  5. ACETAMINOPHEN [Concomitant]
     Active Substance: ACETAMINOPHEN
     Indication: Prophylaxis
     Route: 048
     Dates: start: 20221219, end: 20221219

REACTIONS (1)
  - Hypotension [Recovered/Resolved]

NARRATIVE: CASE EVENT DATE: 20221219
